FAERS Safety Report 6969916-6 (Version None)
Quarter: 2010Q3

REPORT INFORMATION
  Report Type: 
  Country: None (occurrence: None)
  Receive Date: 20100908
  Receipt Date: 20100825
  Transmission Date: 20110219
  Serious: Yes (Other)
  Sender: FDA-Public Use
  Company Number: SG-PAR PHARMACEUTICAL, INC-2010SCPR002036

PATIENT

DRUGS (5)
  1. FLUOXETINE [Suspect]
     Indication: VASCULAR DEMENTIA
     Dosage: 20 MG, EVERY ALTERNATE DAY
     Route: 065
  2. FLUOXETINE [Suspect]
     Dosage: 20 MQ, PER DAY
     Route: 065
  3. FLUOXETINE [Suspect]
     Dosage: 20 MG, EVERY ALTERNATE DAY
  4. HALOPERIDOL [Suspect]
     Indication: MOOD ALTERED
     Dosage: 0.1 MG, PER DAY
     Route: 065
  5. HALOPERIDOL [Suspect]
     Indication: IRRITABILITY

REACTIONS (2)
  - PSORIASIS [None]
  - SEDATION [None]
